FAERS Safety Report 11112926 (Version 1)
Quarter: 2015Q2

REPORT INFORMATION
  Report Type: Spontaneous
  Country: US (occurrence: None)
  Receive Date: 20150504
  Receipt Date: 20150504
  Transmission Date: 20150821
  Serious: Yes (Other)
  Sender: FDA-Public Use
  Company Number: 1398226

PATIENT
  Sex: Male

DRUGS (3)
  1. ALIMTA (PEMETREXED DISODIUM) [Concomitant]
  2. CARBOPLATIN (CARBOPLATIN) [Concomitant]
     Active Substance: CARBOPLATIN
  3. AVASTIN [Suspect]
     Active Substance: BEVACIZUMAB
     Indication: LUNG CANCER METASTATIC

REACTIONS (2)
  - Disease progression [None]
  - Myocardial infarction [None]

NARRATIVE: CASE EVENT DATE: 2013
